FAERS Safety Report 9505714 (Version 1)
Quarter: 2013Q1

REPORT INFORMATION
  Report Type: Spontaneous
  Country: US (occurrence: None)
  Receive Date: 20130225
  Receipt Date: 20130225
  Transmission Date: 20140127
  Serious: No
  Sender: FDA-Public Use
  Company Number: 365635

PATIENT
  Age: 61 Year
  Sex: Female

DRUGS (10)
  1. VICTOZA (LIRAGLUTIDE) SOLUTION FOR INJECTION, 6 MG/ML [Suspect]
     Indication: TYPE 2 DIABETES MELLITUS
     Dosage: IN THE LAST WEEKS
     Route: 058
     Dates: start: 2010
  2. ACTONEL (RISEDRONATE SODIUM) [Concomitant]
  3. CALCIUM (CALCIUM) [Concomitant]
  4. D3-VICOTRAT (COLECALCIFEROL) [Concomitant]
  5. FLECTOR (DICLOFENAC SODIUM) [Concomitant]
  6. MINOCYCLINE (MINOCYCLINE) [Concomitant]
  7. SYNTHROID (LEVOTHYROXINE SODIUM) [Concomitant]
  8. TRENTAL (PENTOXIFYLLINE) [Concomitant]
  9. TRILEPTAL (OXCARBAZEPINE) [Concomitant]
  10. TOPROL (METOPROLOL SUCCINATE) [Concomitant]

REACTIONS (5)
  - Thyroid neoplasm [None]
  - Dyspnoea [None]
  - Trichorrhexis [None]
  - Alopecia [None]
  - Blood glucose decreased [None]
